FAERS Safety Report 19030667 (Version 4)
Quarter: 2021Q3

REPORT INFORMATION
  Report Type: Spontaneous
  Country: US (occurrence: US)
  Receive Date: 20210319
  Receipt Date: 20210812
  Transmission Date: 20211014
  Serious: No
  Sender: FDA-Public Use
  Company Number: US-GLAXOSMITHKLINE-US2021AMR063774

PATIENT
  Sex: Female

DRUGS (1)
  1. ZEJULA [Suspect]
     Active Substance: NIRAPARIB
     Indication: OVARIAN CANCER
     Dosage: 100 MG, QD

REACTIONS (9)
  - Night sweats [Unknown]
  - Carbohydrate antigen 125 increased [Unknown]
  - Paraesthesia [Not Recovered/Not Resolved]
  - Depression [Unknown]
  - Abdominal pain upper [Unknown]
  - Hot flush [Not Recovered/Not Resolved]
  - Epistaxis [Unknown]
  - Rhinorrhoea [Unknown]
  - Hypoaesthesia [Unknown]
